FAERS Safety Report 4683564-2 (Version None)
Quarter: 2005Q2

REPORT INFORMATION
  Report Type: 
  Country: None (occurrence: None)
  Receive Date: 20050606
  Receipt Date: 20050606
  Transmission Date: 20051028
  Serious: Yes (Death, Hospitalization)
  Sender: FDA-Public Use
  Company Number: None

PATIENT
  Age: 63 Year
  Sex: Male
  Weight: 79.3795 kg

DRUGS (4)
  1. CYPHER-SIROLIMUS-ELUTING CORONARY STENT } 2 IMPLANTED ON TWO DIFFERENT [Suspect]
     Indication: ARTERIAL OCCLUSIVE DISEASE
     Dosage: ANGIOPLASTYS 2 TOGETHER
  2. CYPHER-SIROLIMUS-ELUTING CORONARY STENT } 2 IMPLANTED ON TWO DIFFERENT [Suspect]
     Dosage: ANGIOPLASTYS 2 TOGETHER
  3. PLAVIX [Concomitant]
  4. ASPIRIN [Concomitant]

REACTIONS (1)
  - POSTOPERATIVE THROMBOSIS [None]
